FAERS Safety Report 6993280-X (Version None)
Quarter: 2010Q3

REPORT INFORMATION
  Report Type: 
  Country: None (occurrence: None)
  Receive Date: 20100917
  Receipt Date: 20100422
  Transmission Date: 20110219
  Serious: No
  Sender: FDA-Public Use
  Company Number: US-ASTRAZENECA-2010SE18023

PATIENT
  Sex: Female
  Weight: 90.7 kg

DRUGS (6)
  1. SEROQUEL [Suspect]
     Indication: BIPOLAR DISORDER
     Route: 048
  2. SEROQUEL [Suspect]
     Indication: SCHIZOPHRENIA
     Route: 048
  3. SEROQUEL [Suspect]
     Route: 048
  4. SEROQUEL [Suspect]
     Route: 048
  5. FLUOXETINE [Concomitant]
     Route: 048
  6. RISPERIDONE [Concomitant]
     Route: 048

REACTIONS (4)
  - DRUG DOSE OMISSION [None]
  - DYSPHAGIA [None]
  - HYPERTENSION [None]
  - MENSTRUAL DISORDER [None]
